FAERS Safety Report 6701215-X (Version None)
Quarter: 2010Q2

REPORT INFORMATION
  Report Type: 
  Country: None (occurrence: None)
  Receive Date: 20100427
  Receipt Date: 20100416
  Transmission Date: 20101027
  Serious: Yes (Other)
  Sender: FDA-Public Use
  Company Number: 2010EU001550

PATIENT
  Age: 49 Month
  Sex: Male

DRUGS (3)
  1. TACROLIMUS [Suspect]
     Indication: RENAL TRANSPLANT
     Dosage: 0.15 MG/KG, BID; ORAL
     Route: 048
  2. PREDNISOLONE [Suspect]
     Indication: IMMUNOSUPPRESSION
  3. MYCOPHENOLATE MOFETIL [Suspect]
     Indication: IMMUNOSUPPRESSION
     Dosage: 600 MG/M2,  /D,

REACTIONS (7)
  - ALLERGIC RESPIRATORY SYMPTOM [None]
  - ANAPHYLACTIC REACTION [None]
  - ANGIOEDEMA [None]
  - CHEILITIS [None]
  - MUCOUS MEMBRANE DISORDER [None]
  - ORAL DISORDER [None]
  - TONGUE DISORDER [None]
